FAERS Safety Report 22191970 (Version 2)
Quarter: 2023Q2

REPORT INFORMATION
  Report Type: Spontaneous
  Country: CA (occurrence: CA)
  Receive Date: 20230410
  Receipt Date: 20230518
  Transmission Date: 20230721
  Serious: Yes (Other)
  Sender: FDA-Public Use
  Company Number: CA-ORGANON-O2203CAN000563

PATIENT
  Age: 21 Year
  Sex: Female

DRUGS (13)
  1. SINGULAIR [Suspect]
     Active Substance: MONTELUKAST SODIUM
     Indication: Product used for unknown indication
     Dosage: 10 MILLIGRAM, 1 EVERY 1 DAYS, DOSAGE FORM: NOT SPECIFIED
     Route: 048
  2. ADVIL [Suspect]
     Active Substance: IBUPROFEN
     Indication: Product used for unknown indication
     Dosage: UNK, DOSAGE FORM: NOT SPECIFIED
     Route: 065
  3. BUDESONIDE\FORMOTEROL FUMARATE [Suspect]
     Active Substance: BUDESONIDE\FORMOTEROL FUMARATE
     Indication: Product used for unknown indication
     Dosage: UNK,DOSAGE FORM NOT SPECIFIED
  4. NUCALA [Suspect]
     Active Substance: MEPOLIZUMAB
     Indication: Product used for unknown indication
     Dosage: 100 MILLIGRAM, DOSAGE FORM: SOLUTION FOR INJECTION IN PRE-FILLED PEN
     Route: 058
  5. NUCALA [Suspect]
     Active Substance: MEPOLIZUMAB
     Indication: Asthma
     Dosage: UNK
     Route: 042
  6. NUCALA [Suspect]
     Active Substance: MEPOLIZUMAB
     Dosage: DOSAGE FORM: SOLUTION FOR INJECTION IN PRE-FILLED PEN
     Route: 042
  7. NUCALA [Suspect]
     Active Substance: MEPOLIZUMAB
     Dosage: 100 MILLIGRAM,DOSAGE FORM: SOLUTION FOR INJECTION IN PRE-FILLED PEN,INTRAVENOUS(NOT OTHERWISE SPECIF
     Route: 042
  8. NUCALA [Suspect]
     Active Substance: MEPOLIZUMAB
     Dosage: UNK
     Route: 058
  9. NUCALA [Suspect]
     Active Substance: MEPOLIZUMAB
     Dosage: 100 MILLIGRAM,DOSAGE FORM: SOLUTION FOR INJECTION IN PRE-FILLED PEN,INTRAVENOUS(NOT OTHERWISE SPECIF
     Route: 042
  10. NUCALA [Suspect]
     Active Substance: MEPOLIZUMAB
     Dosage: UNK,DOSAGE FORM: SOLUTION FOR INJECTION IN PRE-FILLED PEN
     Route: 058
  11. NUCALA [Suspect]
     Active Substance: MEPOLIZUMAB
     Dosage: UNK,INTRAVENOUS(NOT OTHERWISE SPECIFIED)
     Route: 042
  12. TYLENOL [Suspect]
     Active Substance: ACETAMINOPHEN
     Indication: Product used for unknown indication
     Dosage: UNK, DOSAGE FORM: NOT SPECIFIED
     Route: 065
  13. UMECLIDINIUM BROMIDE [Suspect]
     Active Substance: UMECLIDINIUM BROMIDE
     Indication: Product used for unknown indication
     Dosage: 62.5 MILLIGRAM
     Route: 065

REACTIONS (7)
  - Asthma [Unknown]
  - Drug hypersensitivity [Unknown]
  - Fear of injection [Unknown]
  - Incorrect product administration duration [Unknown]
  - Product dose omission issue [Unknown]
  - Therapeutic product effect incomplete [Unknown]
  - Tremor [Unknown]
